FAERS Safety Report 11112713 (Version 3)
Quarter: 2020Q2

REPORT INFORMATION
  Report Type: Report from Study
  Country: US (occurrence: US)
  Receive Date: 20150514
  Receipt Date: 20200423
  Transmission Date: 20200713
  Serious: Yes (Other)
  Sender: FDA-Public Use
  Company Number: US-SA-2014SA062040

PATIENT
  Age: 57 Year
  Sex: Female

DRUGS (6)
  1. TERIFLUNOMIDE. [Suspect]
     Active Substance: TERIFLUNOMIDE
     Dosage: 14 MG,QD
     Route: 048
  2. TERIFLUNOMIDE. [Suspect]
     Active Substance: TERIFLUNOMIDE
     Dosage: 14 MG,QD
     Route: 048
     Dates: start: 20151217
  3. INTERFERON BETA-1B [Suspect]
     Active Substance: INTERFERON BETA-1B
     Dosage: UNK UNK,UNK
     Route: 065
     Dates: start: 2015
  4. VELCADE [Concomitant]
     Active Substance: BORTEZOMIB
     Dosage: UNK UNK,UNK
     Route: 065
  5. TERIFLUNOMIDE. [Suspect]
     Active Substance: TERIFLUNOMIDE
     Indication: RELAPSING-REMITTING MULTIPLE SCLEROSIS
     Dosage: 14 MG,QD
     Route: 048
     Dates: start: 20140201, end: 20140506
  6. TERIFLUNOMIDE. [Suspect]
     Active Substance: TERIFLUNOMIDE
     Dosage: 14 MG,QD
     Route: 048
     Dates: start: 201508, end: 20150901

REACTIONS (20)
  - Muscle tightness [Not Recovered/Not Resolved]
  - Dyskinesia [Unknown]
  - Neuropathy peripheral [Unknown]
  - Fatigue [Unknown]
  - Confusional state [Not Recovered/Not Resolved]
  - Gait disturbance [Unknown]
  - Impaired work ability [Unknown]
  - Visual impairment [Unknown]
  - Tendon disorder [Unknown]
  - Memory impairment [Not Recovered/Not Resolved]
  - Unevaluable event [Unknown]
  - Contusion [Unknown]
  - Muscle disorder [Unknown]
  - Muscular weakness [Not Recovered/Not Resolved]
  - Balance disorder [Unknown]
  - Multiple sclerosis [Recovering/Resolving]
  - Stress [Not Recovered/Not Resolved]
  - Peripheral coldness [Unknown]
  - Condition aggravated [Not Recovered/Not Resolved]
  - Fall [Not Recovered/Not Resolved]

NARRATIVE: CASE EVENT DATE: 201406
